FAERS Safety Report 15704636 (Version 1)
Quarter: 2018Q4

REPORT INFORMATION
  Report Type: Report from Study
  Country: CA (occurrence: CA)
  Receive Date: 20181210
  Receipt Date: 20181210
  Transmission Date: 20190205
  Serious: Yes (Other)
  Sender: FDA-Public Use
  Company Number: CA-TEVA-2018-CA-986354

PATIENT
  Age: 69 Year
  Sex: Male

DRUGS (9)
  1. SANDOSTATIN [Suspect]
     Active Substance: OCTREOTIDE ACETATE
     Route: 030
  2. SANDOSTATIN [Suspect]
     Active Substance: OCTREOTIDE ACETATE
     Indication: CARCINOID TUMOUR
     Route: 030
  3. SANDOSTATIN [Suspect]
     Active Substance: OCTREOTIDE ACETATE
     Route: 030
  4. SIMVASTATIN. [Concomitant]
     Active Substance: SIMVASTATIN
     Indication: PRODUCT USED FOR UNKNOWN INDICATION
     Dosage: 20 MILLIGRAM DAILY;
     Route: 065
  5. VALSARTAN. [Suspect]
     Active Substance: VALSARTAN
     Indication: PRODUCT USED FOR UNKNOWN INDICATION
     Dosage: 40 MILLIGRAM DAILY;
     Route: 065
  6. SANDOSTATIN [Suspect]
     Active Substance: OCTREOTIDE ACETATE
     Route: 030
  7. METFORMIN [Suspect]
     Active Substance: METFORMIN HYDROCHLORIDE
     Indication: PRODUCT USED FOR UNKNOWN INDICATION
     Route: 065
  8. SANDOSTATIN [Suspect]
     Active Substance: OCTREOTIDE ACETATE
     Route: 030
  9. SANDOSTATIN [Suspect]
     Active Substance: OCTREOTIDE ACETATE
     Route: 030

REACTIONS (15)
  - Blood pressure increased [Recovering/Resolving]
  - Blood pressure diastolic decreased [Recovering/Resolving]
  - Food poisoning [Recovering/Resolving]
  - Inappropriate schedule of product administration [Recovering/Resolving]
  - Nausea [Recovering/Resolving]
  - Needle issue [Recovering/Resolving]
  - Heart rate decreased [Recovering/Resolving]
  - Nephrolithiasis [Recovering/Resolving]
  - Vomiting [Recovering/Resolving]
  - Blood pressure systolic increased [Recovering/Resolving]
  - Malignant neoplasm progression [Recovering/Resolving]
  - Procedural pain [Recovering/Resolving]
  - Blood glucose increased [Recovering/Resolving]
  - Body temperature decreased [Recovering/Resolving]
  - Diarrhoea [Recovering/Resolving]
